FAERS Safety Report 4832632-0 (Version None)
Quarter: 2005Q4

REPORT INFORMATION
  Report Type: 
  Country: None (occurrence: None)
  Receive Date: 20051117
  Receipt Date: 20051109
  Transmission Date: 20060501
  Serious: Yes (Hospitalization)
  Sender: FDA-Public Use
  Company Number: TPA2005A01312

PATIENT
  Age: 59 Year
  Sex: Female
  Weight: 82.3 kg

DRUGS (8)
  1. PIOGLITAZONE HCL [Suspect]
     Indication: GLUCOSE TOLERANCE IMPAIRED
     Dosage: 1 IN 1 D, PER ORAL
     Route: 048
     Dates: start: 20040401
  2. VAGINAL HORMONE CREAM (HORMONES AND RELATED AGENTS) [Concomitant]
  3. ESTRADIOL [Concomitant]
  4. PROGESTERONE [Concomitant]
  5. TESTOSTERONE [Concomitant]
  6. PROZAC [Concomitant]
  7. SYNTHROID [Concomitant]
  8. MULTIPLE SUPPLEMENTS (MULTIVITAMIN AND MINERAL SUPPLEMENT) [Concomitant]

REACTIONS (3)
  - ABDOMINAL PAIN [None]
  - DIVERTICULITIS [None]
  - REFUSAL OF TREATMENT BY PATIENT [None]
